FAERS Safety Report 9232682 (Version 3)
Quarter: 2013Q2

REPORT INFORMATION
  Report Type: Spontaneous
  Country: JP (occurrence: JP)
  Receive Date: 20130416
  Receipt Date: 20130515
  Transmission Date: 20140414
  Serious: Yes (Life-Threatening, Other)
  Sender: FDA-Public Use
  Company Number: JP-009507513-1304JPN006349

PATIENT
  Age: 72 Year
  Sex: Female
  Weight: 52 kg

DRUGS (4)
  1. JANUVIA TABLETS 50MG [Suspect]
     Indication: DIABETES MELLITUS
     Dosage: DAILY DOSE UNKNOWN
     Route: 048
     Dates: start: 20110301, end: 201303
  2. ACTOS [Suspect]
     Indication: DIABETES MELLITUS
     Dosage: DAILY DOSE UNKNOWN
     Route: 048
     Dates: start: 20100803, end: 20120321
  3. METGLUCO [Concomitant]
     Dosage: DAILY DOSE UNKNOWN
     Route: 048
     Dates: start: 201209, end: 201303
  4. AMARYL [Concomitant]
     Dosage: DAILY DOSE UNKNOWN
     Route: 048
     Dates: start: 20130116, end: 201303

REACTIONS (1)
  - Pancreatic carcinoma [Not Recovered/Not Resolved]
